FAERS Safety Report 4617710-3 (Version None)
Quarter: 2005Q1

REPORT INFORMATION
  Report Type: 
  Country: None (occurrence: None)
  Receive Date: 20050324
  Receipt Date: 20050211
  Transmission Date: 20050727
  Serious: Yes (Other)
  Sender: FDA-Public Use
  Company Number: US-ROCHE-395532

PATIENT
  Age: 44 Year
  Sex: Male

DRUGS (4)
  1. PEGASYS [Suspect]
     Indication: HEPATITIS C
     Dosage: ROUTE REPORTED AS INJ.
     Route: 050
     Dates: start: 20020115
  2. COPEGUS [Suspect]
     Indication: HEPATITIS C
     Route: 048
     Dates: start: 20020115
  3. UNSPECIFIED MEDICATION [Concomitant]
     Dosage: DIURETIC (NAME NOT PROVIDED).
  4. UNSPECIFIED MEDICATION [Concomitant]
     Dosage: BETA BLOCKER (NAME NOT PROVIDED).

REACTIONS (8)
  - ANGER [None]
  - CARDIOVASCULAR DISORDER [None]
  - HYPERGLYCAEMIA [None]
  - HYPOGLYCAEMIA [None]
  - SCAR [None]
  - THROMBOCYTOPENIA [None]
  - THROMBOSIS [None]
  - VARICOSE VEIN [None]
